FAERS Safety Report 22150954 (Version 1)
Quarter: 2023Q1

REPORT INFORMATION
  Report Type: Spontaneous
  Country: US (occurrence: None)
  Receive Date: 20230328
  Receipt Date: 20230328
  Transmission Date: 20230417
  Serious: Yes (Other)
  Sender: FDA-Public Use
  Company Number: None

PATIENT
  Age: 52 Year
  Sex: Female

DRUGS (27)
  1. SKYRIZI [Suspect]
     Active Substance: RISANKIZUMAB-RZAA
     Indication: Psoriatic arthropathy
     Dosage: 150 MG/ML?? INJECT 150 MG UNDER THE SKIN (SUBCUATNEOUS INJECTION)ONCE EVERY 12 WEEKS
     Dates: start: 20230110
  2. ATOMOXETINE [Concomitant]
     Active Substance: ATOMOXETINE
  3. ATORVASTATIN [Concomitant]
     Active Substance: ATORVASTATIN
  4. BUSPIRONE TAB [Concomitant]
  5. CLARITIN TAB [Concomitant]
  6. DICLOFENAC [Concomitant]
     Active Substance: DICLOFENAC
  7. DICYCLOMINE TAB [Concomitant]
  8. ESCITALOPRAM TAB [Concomitant]
  9. ESTRADIOL [Concomitant]
     Active Substance: ESTRADIOL
  10. ESTRIVEB CAP NEBIOAYS [Concomitant]
  11. FOLIC ACID TAB [Concomitant]
  12. FUROSEMIDE TAB [Concomitant]
  13. GABAPENTIN [Concomitant]
     Active Substance: GABAPENTIN
  14. IRON TAB [Concomitant]
  15. KETOCONAZOLE CRE [Concomitant]
  16. LANTUS SOLOS INJ [Concomitant]
  17. LATUDA TAB [Concomitant]
  18. LEVOTHYROXIN TAB [Concomitant]
  19. LISINOPRIL [Concomitant]
     Active Substance: LISINOPRIL
  20. LITHIUM CARB TAB [Concomitant]
  21. LORAZEPAM TAB [Concomitant]
  22. METHOTREXATE [Concomitant]
     Active Substance: METHOTREXATE
  23. OMEPRAZOLE TAB [Concomitant]
  24. OXCARBEZEPIN TAB [Concomitant]
  25. POT CHLORIDE TAB [Concomitant]
  26. PROBIOTIC CAP [Concomitant]
  27. VITAMIN D CAP [Concomitant]

REACTIONS (3)
  - Nasopharyngitis [None]
  - Coronary artery occlusion [None]
  - Psoriatic arthropathy [None]

NARRATIVE: CASE EVENT DATE: 20230101
